FAERS Safety Report 14770431 (Version 1)
Quarter: 2018Q2

REPORT INFORMATION
  Report Type: Spontaneous
  Country: US (occurrence: US)
  Receive Date: 20180417
  Receipt Date: 20180417
  Transmission Date: 20180711
  Serious: No
  Sender: FDA-Public Use
  Company Number: US-MYLANLABS-2018M1021932

PATIENT
  Sex: Female

DRUGS (1)
  1. EPINEPHRINE INJECTION USP AUTO-INJECTOR [Suspect]
     Active Substance: EPINEPHRINE
     Indication: PRODUCT USED FOR UNKNOWN INDICATION
     Dosage: UNK
     Route: 030
     Dates: start: 20180328, end: 20180328

REACTIONS (10)
  - Injection site swelling [Recovering/Resolving]
  - Injection site bruising [Unknown]
  - Injection site warmth [Unknown]
  - Palpitations [Not Recovered/Not Resolved]
  - Injection site pain [Not Recovered/Not Resolved]
  - Injection site coldness [Unknown]
  - Heart rate increased [Recovered/Resolved]
  - Accidental exposure to product [Not Recovered/Not Resolved]
  - Injection site hypoaesthesia [Unknown]
  - Hypertension [Recovered/Resolved]

NARRATIVE: CASE EVENT DATE: 20180328
